FAERS Safety Report 10606315 (Version 1)
Quarter: 2014Q4

REPORT INFORMATION
  Report Type: Spontaneous
  Country: CZ (occurrence: None)
  Receive Date: 20141121
  Receipt Date: 20141121
  Transmission Date: 20150529
  Serious: Yes (Life-Threatening, Hospitalization)
  Sender: FDA-Public Use
  Company Number: FK201405376

PATIENT
  Age: 66 Year
  Sex: Female

DRUGS (4)
  1. HUMULIN R (INSULIN HUMAN) [Concomitant]
  2. HUMULIN N (INSULIN HUMAN INJECTION, ISOPHANE) [Concomitant]
  3. CARBOPLATIN INJECTION 10MG/ML (CARBOPLATIN USP) (CARBOPLATIN USP) [Suspect]
     Active Substance: CARBOPLATIN
     Indication: OVARIAN CANCER
     Dosage: INTRACAVERNOUS
     Dates: start: 20141031
  4. APO OME (OMERAZOLE) [Concomitant]

REACTIONS (1)
  - Anaphylactic reaction [None]

NARRATIVE: CASE EVENT DATE: 20141031
